FAERS Safety Report 6275734-7 (Version None)
Quarter: 2009Q3

REPORT INFORMATION
  Report Type: 
  Country: None (occurrence: None)
  Receive Date: 20090721
  Receipt Date: 20090713
  Transmission Date: 20100115
  Serious: Yes (Other)
  Sender: FDA-Public Use
  Company Number: CHNY2009JP02816

PATIENT
  Age: 50 Year
  Sex: Female

DRUGS (3)
  1. VOLTAREN [Suspect]
     Indication: PAIN IN EXTREMITY
     Dosage: UNK
     Route: 061
     Dates: start: 20090601, end: 20090701
  2. VOLTAREN [Suspect]
     Indication: BACK PAIN
  3. VOLTAREN [Suspect]
     Indication: NECK PAIN

REACTIONS (4)
  - GRIP STRENGTH DECREASED [None]
  - INSOMNIA [None]
  - PRURITUS GENERALISED [None]
  - RASH GENERALISED [None]
